FAERS Safety Report 5582622-8 (Version None)
Quarter: 2008Q1

REPORT INFORMATION
  Report Type: 
  Country: None (occurrence: None)
  Receive Date: 20080107
  Receipt Date: 20080103
  Transmission Date: 20080703
  Serious: Yes (Other)
  Sender: FDA-Public Use
  Company Number: PHEH2007US15918

PATIENT
  Sex: Female

DRUGS (6)
  1. DIOVAN [Suspect]
     Indication: HYPERTENSION
     Dosage: 160 MG, BID
     Route: 048
     Dates: start: 20010101
  2. LOPRESSOR [Suspect]
     Indication: HYPERTENSION
     Dosage: 50 MG, BID
     Route: 048
  3. NORVASC [Concomitant]
     Indication: HYPERTENSION
     Dosage: 10 MG, QD
  4. LASIX [Concomitant]
     Indication: HYPERTENSION
     Dosage: 40 MG, 2 TABS QD
  5. VALIUM [Concomitant]
     Dosage: 2.5 MG, PRN
     Route: 048
  6. INSULIN [Concomitant]
     Dosage: UNK, UNK
     Route: 058

REACTIONS (2)
  - ABDOMINAL HERNIA REPAIR [None]
  - HEART RATE DECREASED [None]
